FAERS Safety Report 6801461-0 (Version None)
Quarter: 2010Q2

REPORT INFORMATION
  Report Type: 
  Country: None (occurrence: None)
  Receive Date: 20100629
  Receipt Date: 20100616
  Transmission Date: 20101027
  Serious: Yes (Hospitalization, Other)
  Sender: FDA-Public Use
  Company Number: BR-ROCHE-684952

PATIENT
  Sex: Female
  Weight: 76 kg

DRUGS (11)
  1. ROACUTAN [Suspect]
     Indication: ACNE
     Route: 048
     Dates: start: 20100117
  2. FLUOXETINE [Suspect]
     Indication: ANXIETY
     Route: 048
     Dates: start: 20040101, end: 20100501
  3. FLUOXETINE [Suspect]
     Dosage: ADMINISTERED OVER THAN 400 MG IN ONE DAY AS TRANQUILIZER
     Route: 048
     Dates: start: 20100521
  4. AMFEPRAMONE [Concomitant]
     Indication: WEIGHT CONTROL
     Dosage: DOSE: 60 MG/TABLET
     Route: 048
     Dates: start: 20040101
  5. CHLORDIAZEPOXIDE [Concomitant]
     Indication: WEIGHT CONTROL
     Dosage: DOSE: 4 MG
     Route: 048
     Dates: start: 20040101
  6. FAMOTIDINE [Concomitant]
     Indication: WEIGHT CONTROL
     Dosage: DOSE: 10 MG
     Route: 048
     Dates: start: 20040101
  7. HYDROCHLOROTHIAZIDE [Concomitant]
     Indication: WEIGHT CONTROL
     Route: 048
     Dates: start: 20040101
  8. CASCARA SAGRADA [Concomitant]
     Indication: WEIGHT CONTROL
     Dosage: DOSE: 300 MG
     Route: 048
     Dates: start: 20040101
  9. ALEXANDRIAN SENNA [Concomitant]
     Indication: WEIGHT CONTROL
     Dosage: DOSE: 200 MG
     Route: 048
     Dates: start: 20040101
  10. FISALAMINE [Concomitant]
     Indication: WEIGHT CONTROL
     Dosage: DRUG REPORTED AS FASEOLAMINE
     Route: 048
     Dates: start: 20040101
  11. CITALOPRAM [Concomitant]
     Indication: ANXIETY
     Route: 048
     Dates: start: 20100601

REACTIONS (11)
  - ABDOMINAL PAIN UPPER [None]
  - CHAPPED LIPS [None]
  - DEPRESSION [None]
  - DRY MOUTH [None]
  - DRY SKIN [None]
  - SKIN DISCOLOURATION [None]
  - SKIN EXFOLIATION [None]
  - SKIN LESION [None]
  - SUICIDE ATTEMPT [None]
  - TRISMUS [None]
  - WOUND [None]
